FAERS Safety Report 19135036 (Version 1)
Quarter: 2021Q2

REPORT INFORMATION
  Report Type: Not Available
  Country: US (occurrence: US)
  Receive Date: 20210414
  Receipt Date: 20210414
  Transmission Date: 20210717
  Serious: No
  Sender: FDA-Public Use
  Company Number: US-KINIKSA PHARMACEUTICALS LTD.-2020KPU000069

PATIENT
  Sex: Male

DRUGS (1)
  1. ARCALYST [Suspect]
     Active Substance: RILONACEPT
     Indication: PYREXIA
     Route: 058
     Dates: start: 20190625

REACTIONS (2)
  - Drug ineffective [Unknown]
  - Off label use [Unknown]

NARRATIVE: CASE EVENT DATE: 20190625
